FAERS Safety Report 6963811-4 (Version None)
Quarter: 2010Q3

REPORT INFORMATION
  Report Type: 
  Country: None (occurrence: None)
  Receive Date: 20100830
  Receipt Date: 20090930
  Transmission Date: 20110219
  Serious: Yes (Other)
  Sender: FDA-Public Use
  Company Number: UK-2009-00308

PATIENT
  Age: 41 Year
  Sex: Female

DRUGS (1)
  1. LISINOPRIL [Suspect]
     Indication: CARDIOMYOPATHY

REACTIONS (5)
  - DRUG EXPOSURE DURING PREGNANCY [None]
  - DYSPNOEA [None]
  - OLIGOHYDRAMNIOS [None]
  - PREMATURE LABOUR [None]
  - RENAL FAILURE [None]
